FAERS Safety Report 26144663 (Version 1)
Quarter: 2025Q4

REPORT INFORMATION
  Report Type: Spontaneous
  Country: US (occurrence: None)
  Receive Date: 20251210
  Receipt Date: 20251210
  Transmission Date: 20260117
  Serious: Yes (Hospitalization)
  Sender: FDA-CTU
  Company Number: None

PATIENT
  Age: 78 Year
  Sex: Male
  Weight: 92.9 kg

DRUGS (2)
  1. EMPAGLIFLOZIN [Suspect]
     Active Substance: EMPAGLIFLOZIN
     Indication: Diabetes mellitus
     Dosage: FREQUENCY : TWICE A DAY;
     Route: 048
     Dates: start: 20250501, end: 20250813
  2. EMPAGLIFLOZIN [Suspect]
     Active Substance: EMPAGLIFLOZIN

REACTIONS (4)
  - Pyelonephritis [None]
  - Urinary tract infection [None]
  - Klebsiella infection [None]
  - Bacteraemia [None]

NARRATIVE: CASE EVENT DATE: 20250808
